FAERS Safety Report 12249765 (Version 1)
Quarter: 2016Q2

REPORT INFORMATION
  Report Type: Spontaneous
  Country: FR (occurrence: FR)
  Receive Date: 20160408
  Receipt Date: 20160408
  Transmission Date: 20160815
  Serious: Yes (Other)
  Sender: FDA-Public Use
  Company Number: PHHY2016FR044168

PATIENT
  Age: 59 Year
  Sex: Female

DRUGS (1)
  1. LAMISIL [Suspect]
     Active Substance: TERBINAFINE HYDROCHLORIDE
     Indication: FUNGAL INFECTION
     Dosage: UNK
     Route: 065
     Dates: start: 20011211, end: 200112

REACTIONS (8)
  - Depression [Not Recovered/Not Resolved]
  - Nail injury [Unknown]
  - Finger deformity [Not Recovered/Not Resolved]
  - Abscess [Unknown]
  - Onychomadesis [Not Recovered/Not Resolved]
  - Autonomic nervous system imbalance [Not Recovered/Not Resolved]
  - Onychalgia [Unknown]
  - Mental disorder [Unknown]

NARRATIVE: CASE EVENT DATE: 200112
